FAERS Safety Report 8429677-0 (Version None)
Quarter: 2012Q2

REPORT INFORMATION
  Report Type: 
  Country: None (occurrence: None)
  Receive Date: 20120524
  Receipt Date: 20120517
  Transmission Date: 20120825
  Serious: Yes (Hospitalization)
  Sender: FDA-Public Use
  Company Number: AEUSA201200245

PATIENT
  Age: 6 Year
  Sex: Male
  Weight: 22 kg

DRUGS (1)
  1. ALPHANATE [Suspect]
     Indication: HAEMOPHILIA A WITH ANTI FACTOR VIII
     Dosage: 100 IU/KG;QD;IV
     Route: 042
     Dates: start: 20090101

REACTIONS (5)
  - DEVICE RELATED INFECTION [None]
  - VENA CAVA THROMBOSIS [None]
  - OROPHARYNGEAL PAIN [None]
  - STAPHYLOCOCCAL INFECTION [None]
  - PULMONARY EMBOLISM [None]
